FAERS Safety Report 8305742-3 (Version None)
Quarter: 2012Q2

REPORT INFORMATION
  Report Type: 
  Country: None (occurrence: None)
  Receive Date: 20120418
  Receipt Date: 20120409
  Transmission Date: 20120825
  Serious: Yes (Life-Threatening, Hospitalization)
  Sender: FDA-Public Use
  Company Number: DAV-AE-MTX-12-27

PATIENT
  Age: 77 Year
  Sex: Male
  Weight: 47.5 kg

DRUGS (10)
  1. ISOSORBIDE DINITRATE [Concomitant]
  2. ENBREL [Suspect]
     Indication: RHEUMATOID ARTHRITIS
     Dosage: 25 MG, Q4WK, SUBCUTANEOUS
     Route: 058
     Dates: start: 20100628, end: 20111224
  3. FOLIC ACID [Concomitant]
  4. NORVASC [Concomitant]
  5. RHEUMATREX [Suspect]
     Indication: RHEUMATOID ARTHRITIS
     Dosage: 6 MG, QWK, ORAL
     Route: 048
     Dates: start: 20040304, end: 20050313
  6. ECARD COMBINATION (CANDESARTAN CILEXETIL) (HYDROCHLOROTHIAZIDE) [Concomitant]
  7. VOLTAREN [Concomitant]
  8. FOSAMAX [Concomitant]
  9. TOLTERODINE TARTRATE [Concomitant]
  10. FLIVAS (NAFTOPIDIL) [Concomitant]

REACTIONS (4)
  - ABASIA [None]
  - FATIGUE [None]
  - NECROTISING FASCIITIS [None]
  - SKIN GRAFT [None]
